FAERS Safety Report 8308973-1 (Version None)
Quarter: 2012Q2

REPORT INFORMATION
  Report Type: 
  Country: None (occurrence: None)
  Receive Date: 20120424
  Receipt Date: 20120423
  Transmission Date: 20120825
  Serious: No
  Sender: FDA-Public Use
  Company Number: US-BAYER-2012-039902

PATIENT
  Age: 86 Year
  Sex: Male

DRUGS (7)
  1. LEVITRA [Suspect]
     Indication: ERECTILE DYSFUNCTION
  2. DOXAZOSIN MESYLATE [Concomitant]
  3. DOXAZOSIN MESYLATE [Concomitant]
  4. CARDURA [Concomitant]
  5. WARFARIN SODIUM [Concomitant]
  6. SPINOLACI [Concomitant]
  7. GLYBURIDE [Concomitant]

REACTIONS (1)
  - VOMITING [None]
